FAERS Safety Report 26063879 (Version 2)
Quarter: 2025Q4

REPORT INFORMATION
  Report Type: Spontaneous
  Country: US (occurrence: US)
  Receive Date: 20251119
  Receipt Date: 20251125
  Transmission Date: 20260119
  Serious: Yes (Life-Threatening, Hospitalization)
  Sender: TEVA
  Company Number: US-TEVA-VS-3392741

PATIENT
  Age: 64 Year
  Sex: Female

DRUGS (1)
  1. RAMIPRIL [Suspect]
     Active Substance: RAMIPRIL
     Indication: Hypertension
     Dosage: INGESTED?UP TO 600 MG
     Route: 048

REACTIONS (9)
  - Overdose [Unknown]
  - Pneumatosis intestinalis [Recovered/Resolved]
  - Peritonitis [Recovered/Resolved]
  - Hypotension [Recovered/Resolved]
  - Shock [Recovered/Resolved]
  - Lactic acidosis [Recovered/Resolved]
  - Acute kidney injury [Recovered/Resolved]
  - Liver injury [Recovered/Resolved]
  - Vasoplegia syndrome [Recovered/Resolved]
